FAERS Safety Report 18761044 (Version 3)
Quarter: 2021Q2

REPORT INFORMATION
  Report Type: Spontaneous
  Country: US (occurrence: US)
  Receive Date: 20210119
  Receipt Date: 20210526
  Transmission Date: 20210717
  Serious: Yes (Hospitalization)
  Sender: FDA-Public Use
  Company Number: US-JNJFOC-20210124631

PATIENT
  Age: 60 Year
  Sex: Male
  Weight: 90.8 kg

DRUGS (1)
  1. TREMFYA [Suspect]
     Active Substance: GUSELKUMAB
     Indication: ERYTHRODERMIC PSORIASIS
     Route: 058
     Dates: start: 202012

REACTIONS (3)
  - Product use in unapproved indication [Unknown]
  - Off label use [Unknown]
  - Hepatitis C [Unknown]

NARRATIVE: CASE EVENT DATE: 202012
